FAERS Safety Report 11794161 (Version 5)
Quarter: 2016Q2

REPORT INFORMATION
  Report Type: Report from Study
  Country: US (occurrence: US)
  Receive Date: 20151202
  Receipt Date: 20160415
  Transmission Date: 20160815
  Serious: Yes (Hospitalization, Other)
  Sender: FDA-Public Use
  Company Number: US-BAYER-2015-464554

PATIENT
  Age: 62 Year
  Sex: Female
  Weight: 70.3 kg

DRUGS (25)
  1. NEXAVAR [Suspect]
     Active Substance: SORAFENIB
     Indication: HEPATOCELLULAR CARCINOMA
     Dosage: 200 MG, QD
     Route: 048
     Dates: start: 20151109, end: 20151111
  2. FUROSEMIDE. [Concomitant]
     Active Substance: FUROSEMIDE
     Dosage: UNK
  3. ONDANSETRON [Concomitant]
     Active Substance: ONDANSETRON
  4. XIFAXAN [Concomitant]
     Active Substance: RIFAXIMIN
  5. BUPROPION. [Concomitant]
     Active Substance: BUPROPION
  6. CITALOPRAM [Concomitant]
     Active Substance: CITALOPRAM HYDROBROMIDE
  7. NEXAVAR [Suspect]
     Active Substance: SORAFENIB
     Indication: HEPATOCELLULAR CARCINOMA
     Dosage: 200 MG, TID
     Route: 048
  8. METHYLPREDNISOLON [Concomitant]
     Active Substance: METHYLPREDNISOLONE
  9. CARAFATE [Concomitant]
     Active Substance: SUCRALFATE
  10. CELEXA [Concomitant]
     Active Substance: CITALOPRAM HYDROBROMIDE
  11. DICYCLOMINE [Concomitant]
     Active Substance: DICYCLOMINE HYDROCHLORIDE
  12. NEXAVAR [Suspect]
     Active Substance: SORAFENIB
     Indication: HEPATOCELLULAR CARCINOMA
     Dosage: 200 MG, BID
     Route: 048
     Dates: start: 20151112
  13. NEXAVAR [Suspect]
     Active Substance: SORAFENIB
     Indication: HEPATOCELLULAR CARCINOMA
     Dosage: 200 MG, BID
     Route: 048
  14. LASIX [Concomitant]
     Active Substance: FUROSEMIDE
  15. KLOR-CON [Concomitant]
     Active Substance: POTASSIUM CHLORIDE
  16. ZOFRAN [Concomitant]
     Active Substance: ONDANSETRON HYDROCHLORIDE
  17. AFLURIA [Concomitant]
     Active Substance: INFLUENZA VIRUS VACCINE TRIVALENT TYPE A+B AFLURIA
  18. ALDACTONE [POTASSIUM CANRENOATE] [Concomitant]
     Active Substance: CANRENOATE POTASSIUM
  19. NEXAVAR [Suspect]
     Active Substance: SORAFENIB
     Indication: HEPATOCELLULAR CARCINOMA
     Dosage: 200 MG, BID (FOR TWO WEEKS)
     Route: 048
     Dates: end: 201510
  20. NADOLOL. [Concomitant]
     Active Substance: NADOLOL
     Dosage: UNK
  21. SPIRONOLACTONE. [Concomitant]
     Active Substance: SPIRONOLACTONE
  22. NEXAVAR [Suspect]
     Active Substance: SORAFENIB
     Indication: HEPATOCELLULAR CARCINOMA
     Dosage: 400 MG, BID (ONE HOUR BEFORE A MEAL OR TWO HOURS AFTER A MEAL)
     Route: 048
     Dates: start: 20151028, end: 20151106
  23. NEXAVAR [Suspect]
     Active Substance: SORAFENIB
     Indication: HEPATOCELLULAR CARCINOMA
     Dosage: 400 MG, BID
     Route: 048
  24. NEXAVAR [Suspect]
     Active Substance: SORAFENIB
     Indication: HEPATOCELLULAR CARCINOMA
     Dosage: 200 MG, BID
     Route: 048
  25. LACTULOSE. [Concomitant]
     Active Substance: LACTULOSE

REACTIONS (13)
  - Balance disorder [Not Recovered/Not Resolved]
  - Fatigue [Not Recovered/Not Resolved]
  - Speech disorder [Recovering/Resolving]
  - Thinking abnormal [Recovering/Resolving]
  - Insomnia [Recovering/Resolving]
  - Pain in extremity [Unknown]
  - Sputum discoloured [Recovering/Resolving]
  - Chills [Unknown]
  - Adverse drug reaction [Unknown]
  - Activities of daily living impaired [Recovering/Resolving]
  - Drug intolerance [Unknown]
  - Muscle spasms [Recovering/Resolving]
  - Nasopharyngitis [Recovering/Resolving]

NARRATIVE: CASE EVENT DATE: 2015
